FAERS Safety Report 6902787-2 (Version None)
Quarter: 2010Q3

REPORT INFORMATION
  Report Type: 
  Country: None (occurrence: None)
  Receive Date: 20100803
  Receipt Date: 20080614
  Transmission Date: 20110219
  Serious: No
  Sender: FDA-Public Use
  Company Number: US-PFIZER INC-2008033766

PATIENT
  Sex: Female
  Weight: 68 kg

DRUGS (5)
  1. LYRICA [Suspect]
     Indication: NEURALGIA
     Route: 048
     Dates: start: 20080101
  2. OXYMORPHONE HYDROCHLORIDE [Concomitant]
     Route: 048
  3. PROZAC [Concomitant]
     Route: 048
  4. DIURETICS [Concomitant]
     Route: 048
  5. TEMAZEPAM [Concomitant]
     Route: 048

REACTIONS (1)
  - WEIGHT INCREASED [None]
